FAERS Safety Report 6417702-8 (Version None)
Quarter: 2009Q4

REPORT INFORMATION
  Report Type: 
  Country: None (occurrence: None)
  Receive Date: 20091028
  Receipt Date: 20091019
  Transmission Date: 20100525
  Serious: Yes (Other)
  Sender: FDA-Public Use
  Company Number: CA-ABBOTT-09P-028-0600986-01

PATIENT
  Sex: Male
  Weight: 73 kg

DRUGS (13)
  1. HUMIRA [Suspect]
     Indication: RHEUMATOID ARTHRITIS
     Route: 058
     Dates: start: 20081204
  2. METHOTREXATE [Suspect]
     Indication: RHEUMATOID ARTHRITIS
     Route: 048
     Dates: start: 20081204, end: 20091001
  3. MULTI-VITAMINS [Concomitant]
     Indication: VITAMIN SUPPLEMENTATION
     Dates: start: 20030101
  4. VITAMIN D [Concomitant]
     Indication: VITAMIN SUPPLEMENTATION
     Dates: start: 20050101
  5. PLENDIL [Concomitant]
     Indication: HYPERTENSION
     Dates: start: 20060101
  6. VITAMIN B-12 [Concomitant]
     Indication: ANAEMIA
     Dates: start: 20030101
  7. OMEPRAZOLE [Concomitant]
     Indication: DYSPEPSIA
     Dates: start: 20030101
  8. CITALOPRAM HYDROBROMIDE [Concomitant]
     Indication: ANXIETY
     Dates: start: 20060101
  9. ASPIRIN [Concomitant]
     Indication: CARDIOVASCULAR EVENT PROPHYLAXIS
     Dates: start: 20070101
  10. FOLIC ACID [Concomitant]
     Indication: VITAMIN SUPPLEMENTATION
     Dates: start: 20081204
  11. ACETAMINOPHEN [Concomitant]
     Indication: HEADACHE
     Dates: start: 20040101
  12. LORAZEPAM [Concomitant]
     Indication: INSOMNIA
     Dates: start: 20060101
  13. TORADOL [Concomitant]
     Indication: BACK PAIN
     Dates: start: 20090817, end: 20090817

REACTIONS (1)
  - LUNG NEOPLASM MALIGNANT [None]
